FAERS Safety Report 11616466 (Version 2)
Quarter: 2015Q4

REPORT INFORMATION
  Report Type: Spontaneous
  Country: JP (occurrence: JP)
  Receive Date: 20151009
  Receipt Date: 20151029
  Transmission Date: 20160304
  Serious: Yes (Death, Hospitalization, Other)
  Sender: FDA-Public Use
  Company Number: JP-PFIZER INC-2015263253

PATIENT
  Age: 71 Year
  Sex: Male
  Weight: 54.5 kg

DRUGS (1)
  1. TORISEL [Suspect]
     Active Substance: TEMSIROLIMUS
     Indication: RENAL CELL CARCINOMA
     Dosage: UNK
     Route: 041
     Dates: start: 20150708

REACTIONS (5)
  - Interstitial lung disease [Fatal]
  - Renal cell carcinoma [Fatal]
  - Acute respiratory failure [Fatal]
  - Pneumocystis jirovecii pneumonia [Unknown]
  - Disease progression [Fatal]

NARRATIVE: CASE EVENT DATE: 20150712
